FAERS Safety Report 7069052-7 (Version None)
Quarter: 2010Q4

REPORT INFORMATION
  Report Type: 
  Country: None (occurrence: None)
  Receive Date: 20101028
  Receipt Date: 20101019
  Transmission Date: 20110411
  Serious: Yes (Hospitalization, Other)
  Sender: FDA-Public Use
  Company Number: IN-BAXTER-2010BH026643

PATIENT
  Age: 54 Year
  Sex: Male

DRUGS (2)
  1. DIANEAL [Suspect]
     Indication: PERITONEAL DIALYSIS
     Route: 033
     Dates: start: 20101001
  2. DIANEAL [Suspect]
     Route: 033
     Dates: start: 20101001

REACTIONS (3)
  - ABDOMINAL INJURY [None]
  - BLOODY PERITONEAL EFFLUENT [None]
  - PERITONITIS [None]
